FAERS Safety Report 17905138 (Version 1)
Quarter: 2020Q2

REPORT INFORMATION
  Report Type: Spontaneous
  Country: US (occurrence: US)
  Receive Date: 20200616
  Receipt Date: 20200616
  Transmission Date: 20200714
  Serious: No
  Sender: FDA-Public Use
  Company Number: US-ROCHE-2433716

PATIENT
  Age: 75 Year
  Sex: Male
  Weight: 106.69 kg

DRUGS (5)
  1. AMLODIPINE [Concomitant]
     Active Substance: AMLODIPINE BESYLATE
     Indication: BLOOD PRESSURE MEASUREMENT
     Route: 048
  2. LOSARTAN. [Concomitant]
     Active Substance: LOSARTAN
     Indication: BLOOD PRESSURE MEASUREMENT
     Route: 048
  3. ACTEMRA [Suspect]
     Active Substance: TOCILIZUMAB
     Indication: RHEUMATOID ARTHRITIS
     Dosage: YES
     Route: 041
     Dates: start: 201907
  4. ACTEMRA [Suspect]
     Active Substance: TOCILIZUMAB
     Route: 042
  5. METOPROLOL SUCCINATE. [Concomitant]
     Active Substance: METOPROLOL SUCCINATE
     Indication: BLOOD PRESSURE MEASUREMENT
     Route: 048

REACTIONS (10)
  - Memory impairment [Unknown]
  - Discomfort [Unknown]
  - Gait inability [Unknown]
  - Dry skin [Unknown]
  - Pain in extremity [Unknown]
  - Asthenia [Unknown]
  - Skin exfoliation [Unknown]
  - Bedridden [Unknown]
  - Weight decreased [Unknown]
  - Pain [Unknown]

NARRATIVE: CASE EVENT DATE: 201908
